FAERS Safety Report 16255770 (Version 1)
Quarter: 2019Q2

REPORT INFORMATION
  Report Type: Other
  Country: IT (occurrence: IT)
  Receive Date: 20190430
  Receipt Date: 20190430
  Transmission Date: 20190711
  Serious: Yes (Life-Threatening, Hospitalization)
  Sender: FDA-Public Use
  Company Number: IT-ATLAS PHARMACEUTICALS, LLC-2066431

PATIENT
  Age: 75 Year
  Sex: Female

DRUGS (1)
  1. METFORMIN [Suspect]
     Active Substance: METFORMIN HYDROCHLORIDE
     Indication: DIABETES MELLITUS
     Route: 048

REACTIONS (3)
  - Lactic acidosis [Recovered/Resolved]
  - Toxicity to various agents [Unknown]
  - Renal failure [Recovered/Resolved]
